FAERS Safety Report 7934743-X (Version None)
Quarter: 2011Q4

REPORT INFORMATION
  Report Type: 
  Country: None (occurrence: None)
  Receive Date: 20111122
  Receipt Date: 20111107
  Transmission Date: 20120403
  Serious: Yes (Death, Hospitalization)
  Sender: FDA-Public Use
  Company Number: US-WATSON-2011-19317

PATIENT
  Age: 86 Year
  Sex: Male

DRUGS (2)
  1. COLCHICINE [Suspect]
     Indication: FEMUR FRACTURE
     Dosage: 2 MG LOADING DOSE
     Route: 042
  2. COLCHICINE [Suspect]
     Dosage: 0.5 MG (AFTER LOADING DOSE) EVERY 6 H W/TOTAL OF 5 MG WITHIN 36 H
     Route: 042

REACTIONS (5)
  - RENAL FAILURE [None]
  - TOXICITY TO VARIOUS AGENTS [None]
  - DIARRHOEA [None]
  - VOMITING [None]
  - CARDIAC ARREST [None]
